FAERS Safety Report 18243846 (Version 1)
Quarter: 2020Q3

REPORT INFORMATION
  Report Type: Report from Study
  Country: BR (occurrence: BR)
  Receive Date: 20200908
  Receipt Date: 20200908
  Transmission Date: 20201103
  Serious: Yes (Other)
  Sender: FDA-Public Use
  Company Number: PHHY2019BR049151

PATIENT
  Sex: Male
  Weight: 60 kg

DRUGS (1)
  1. VOTRIENT [Suspect]
     Active Substance: PAZOPANIB HYDROCHLORIDE
     Indication: METASTATIC RENAL CELL CARCINOMA
     Dosage: 800 MG, QD
     Route: 048
     Dates: start: 20180820

REACTIONS (12)
  - Pulmonary mass [Not Recovered/Not Resolved]
  - Dizziness [Recovering/Resolving]
  - Neoplasm progression [Not Recovered/Not Resolved]
  - Brain oedema [Not Recovered/Not Resolved]
  - Nausea [Recovered/Resolved]
  - Muscular weakness [Unknown]
  - Brain neoplasm [Not Recovered/Not Resolved]
  - Renal mass [Not Recovered/Not Resolved]
  - Gait disturbance [Recovering/Resolving]
  - Vision blurred [Unknown]
  - Xanthopsia [Not Recovered/Not Resolved]
  - Coordination abnormal [Unknown]
